FAERS Safety Report 9174743 (Version 1)
Quarter: 2013Q1

REPORT INFORMATION
  Report Type: Spontaneous
  Country: US (occurrence: US)
  Receive Date: 20130320
  Receipt Date: 20130320
  Transmission Date: 20140127
  Serious: Yes (Other)
  Sender: FDA-Public Use
  Company Number: US-PFIZER INC-2013087501

PATIENT
  Age: 11 Month
  Sex: Male
  Weight: 13.1 kg

DRUGS (1)
  1. TESTOSTERONE CIPIONATE [Suspect]

REACTIONS (2)
  - Intentional drug misuse [Unknown]
  - Precocious puberty [Unknown]
